FAERS Safety Report 13410013 (Version 3)
Quarter: 2017Q3

REPORT INFORMATION
  Report Type: Spontaneous
  Country: US (occurrence: US)
  Receive Date: 20170406
  Receipt Date: 20170710
  Transmission Date: 20171127
  Serious: No
  Sender: FDA-Public Use
  Company Number: US-PFIZER INC-2016460992

PATIENT
  Age: 51 Year
  Sex: Female
  Weight: 129.2 kg

DRUGS (18)
  1. LYRICA [Suspect]
     Active Substance: PREGABALIN
     Indication: RESTLESS LEGS SYNDROME
     Dosage: 75 MG, AS NEEDED (ONE PILL ONE HOUR BEFORE BEDTIME) [ONCE A DAY]
     Route: 048
     Dates: start: 20160927
  2. HUMIRA [Concomitant]
     Active Substance: ADALIMUMAB
     Dosage: 40 MG, UNK (UNDER THE SKIN EVERY 14 (FOURTEEN) DAYS)
     Route: 058
  3. ALOGLIPTIN. [Concomitant]
     Active Substance: ALOGLIPTIN
     Dosage: 25 MG, 1X/DAY
     Route: 048
  4. ZANTAC [Concomitant]
     Active Substance: RANITIDINE HYDROCHLORIDE
     Dosage: 75 MG, 2X/DAY
     Route: 048
  5. PROVENTIL HFA [Concomitant]
     Active Substance: ALBUTEROL SULFATE
     Indication: WHEEZING
     Dosage: UNK UNK, AS NEEDED  (INHALE 2 PUFFS INTO THE LUNGS EVERY 6 (SIX) HOURS)
     Route: 055
  6. LEVOTHROID [Concomitant]
     Active Substance: LEVOTHYROXINE SODIUM
     Dosage: 100 UG, UNK  (DAILY BEFORE BREAKFAST)
     Route: 048
  7. SYNTHROID [Concomitant]
     Active Substance: LEVOTHYROXINE SODIUM
     Dosage: 100 UG, 1X/DAY  (DAILY BEFORE BREAKFAST)
     Route: 048
  8. VENTOLIN HFA [Concomitant]
     Active Substance: ALBUTEROL SULFATE
     Indication: WHEEZING
     Dosage: UNK UNK, AS NEEDED  (INHALE 2 PUFFS INTO THE LUNGS EVERY 6 (SIX) HOURS)
     Route: 055
  9. VITAMIN D3 [Concomitant]
     Active Substance: CHOLECALCIFEROL
     Dosage: 5000 IU, 1X/DAY
     Route: 048
  10. NEUPRO [Concomitant]
     Active Substance: ROTIGOTINE
     Dosage: UNK, 1X/DAY [ONE TIME A DAY]
     Route: 062
     Dates: start: 201509
  11. PROAIR HFA [Concomitant]
     Active Substance: ALBUTEROL SULFATE
     Indication: WHEEZING
     Dosage: UNK UNK, AS NEEDED  (INHALE 2 PUFFS INTO THE LUNGS EVERY 6 (SIX) HOURS)
     Route: 055
  12. CUTIVATE [Concomitant]
     Active Substance: FLUTICASONE PROPIONATE
     Indication: PSORIASIS
     Dosage: UNK UNK, AS NEEDED (DAILY)
  13. NEURONTIN [Concomitant]
     Active Substance: GABAPENTIN
     Dosage: 600 MG, AS NEEDED (ONCE NIGHTLY)
     Route: 048
  14. SINGULAIR [Concomitant]
     Active Substance: MONTELUKAST SODIUM
     Dosage: 10 MG, 1X/DAY (DAILY EVERY NIGHT)
     Route: 048
  15. NEUPRO [Concomitant]
     Active Substance: ROTIGOTINE
     Indication: RESTLESS LEGS SYNDROME
     Dosage: UNK UNK, 1X/DAY (1 PATCH ONTO THE SKIN ONCE DAILY)
  16. PRINZIDE [Concomitant]
     Active Substance: HYDROCHLOROTHIAZIDE\LISINOPRIL
     Dosage: UNK UNK, DAILY (HYDROCHLOROTHIAZIDE- 12.5MG, LISINOPRIL DIHYDRATE- 10MG; EVERY MORNING)
     Route: 048
  17. ZESTORETIC [Concomitant]
     Active Substance: HYDROCHLOROTHIAZIDE\LISINOPRIL
     Dosage: UNK UNK, DAILY (HYDROCHLOROTHIAZIDE- 12.5MG, LISINOPRIL- 10MG; EVERY MORNING)
     Route: 048
  18. NORVASC [Concomitant]
     Active Substance: AMLODIPINE BESYLATE
     Dosage: 10 MG, DAILY (EVERY MORNING)
     Route: 048

REACTIONS (2)
  - Product use issue [Unknown]
  - Drug ineffective for unapproved indication [Unknown]

NARRATIVE: CASE EVENT DATE: 20160927
